FAERS Safety Report 9162298 (Version 1)
Quarter: 2013Q1

REPORT INFORMATION
  Report Type: Spontaneous
  Country: US (occurrence: None)
  Receive Date: 20130117
  Receipt Date: 20130117
  Transmission Date: 20140127
  Serious: Yes (Hospitalization)
  Sender: FDA-Public Use
  Company Number: 2012PROUSA02396

PATIENT
  Age: 78 Year
  Sex: Male
  Weight: 105.7 kg

DRUGS (1)
  1. PROVENGE (SIPULEUCEL-T) SUSPENSION, 250ML [Suspect]
     Indication: PROSTATE CANCER METASTATIC
     Route: 042
     Dates: start: 20121102, end: 20121102

REACTIONS (2)
  - Chronic obstructive pulmonary disease [None]
  - Staphylococcal bacteraemia [None]
